FAERS Safety Report 25765050 (Version 1)
Quarter: 2025Q3

REPORT INFORMATION
  Report Type: Spontaneous
  Country: US (occurrence: US)
  Receive Date: 20250905
  Receipt Date: 20250905
  Transmission Date: 20251020
  Serious: Yes (Disabling, Other)
  Sender: HIKMA
  Company Number: US-HIKMA PHARMACEUTICALS USA INC.-US-H14001-25-09993

PATIENT
  Sex: Female

DRUGS (1)
  1. CIPROFLOXACIN [Suspect]
     Active Substance: CIPROFLOXACIN
     Indication: Urinary tract infection
     Route: 065
     Dates: start: 2023

REACTIONS (6)
  - Disability [Unknown]
  - Nerve injury [Unknown]
  - Fatigue [Unknown]
  - Neuropathy peripheral [Unknown]
  - Movement disorder [Unknown]
  - Loss of personal independence in daily activities [Unknown]
